FAERS Safety Report 6428028-0 (Version None)
Quarter: 2009Q4

REPORT INFORMATION
  Report Type: 
  Country: None (occurrence: None)
  Receive Date: 20091105
  Receipt Date: 20091026
  Transmission Date: 20100525
  Serious: Yes (Other)
  Sender: FDA-Public Use
  Company Number: JP-ROCHE-665728

PATIENT
  Age: 22 Year
  Sex: Male

DRUGS (4)
  1. TAMIFLU [Suspect]
     Indication: INFLUENZA
     Route: 048
     Dates: start: 20091007, end: 20091007
  2. TAMIFLU [Suspect]
     Route: 048
     Dates: start: 20091008, end: 20091008
  3. TAMIFLU [Suspect]
     Route: 048
     Dates: start: 20091009, end: 20091009
  4. CALONAL [Concomitant]
     Dosage: DOSE FORM: ORAL FORMULATION (NOT OTHERWISE SPECIFIED)
     Route: 048

REACTIONS (1)
  - ABNORMAL BEHAVIOUR [None]
